FAERS Safety Report 15241157 (Version 1)
Quarter: 2018Q3

REPORT INFORMATION
  Report Type: Spontaneous
  Country: US (occurrence: US)
  Receive Date: 20180711
  Receipt Date: 20180711
  Transmission Date: 20181010
  Serious: Yes (Disabling)
  Sender: FDA-Public Use
  Company Number: None

PATIENT
  Age: 84 Year
  Sex: Male
  Weight: 87.75 kg

DRUGS (2)
  1. SPINAL CORD STIMULATOR [Concomitant]
  2. ELIQUIS [Suspect]
     Active Substance: APIXABAN
     Indication: ATRIAL FIBRILLATION
     Route: 048
     Dates: start: 20171227, end: 20180510

REACTIONS (5)
  - Oppositional defiant disorder [None]
  - Atrial fibrillation [None]
  - Memory impairment [None]
  - Dementia [None]
  - Confusional state [None]

NARRATIVE: CASE EVENT DATE: 20171227
